FAERS Safety Report 5577687-3 (Version None)
Quarter: 2007Q4

REPORT INFORMATION
  Report Type: 
  Country: None (occurrence: None)
  Receive Date: 20071227
  Receipt Date: 20071219
  Transmission Date: 20080405
  Serious: Yes (Hospitalization)
  Sender: FDA-Public Use
  Company Number: 231393J07USA

PATIENT
  Age: 41 Year
  Sex: Female

DRUGS (3)
  1. REBIF [Suspect]
     Indication: MULTIPLE SCLEROSIS
     Dosage: SEE IMAGE
     Route: 058
     Dates: start: 20061001, end: 20070601
  2. REBIF [Suspect]
     Indication: MULTIPLE SCLEROSIS
     Dosage: SEE IMAGE
     Route: 058
     Dates: start: 20070601, end: 20071001
  3. REBIF [Suspect]
     Indication: MULTIPLE SCLEROSIS
     Dosage: SEE IMAGE
     Route: 058
     Dates: start: 20071001

REACTIONS (7)
  - ABDOMINAL PAIN [None]
  - HEADACHE [None]
  - HYDRONEPHROSIS [None]
  - INJECTION SITE REACTION [None]
  - PANCREATIC NEOPLASM [None]
  - URETERIC OBSTRUCTION [None]
  - VARICOCELE [None]
